FAERS Safety Report 12343041 (Version 1)
Quarter: 2016Q2

REPORT INFORMATION
  Report Type: Spontaneous
  Country: FR (occurrence: FR)
  Receive Date: 20160506
  Receipt Date: 20160506
  Transmission Date: 20160815
  Serious: Yes (Death, Life-Threatening)
  Sender: FDA-Public Use
  Company Number: FR-SA-2016SA088509

PATIENT
  Age: 72 Year
  Sex: Male

DRUGS (4)
  1. LOVENOX [Suspect]
     Active Substance: ENOXAPARIN SODIUM
     Route: 058
  2. KARDEGIC [Suspect]
     Active Substance: ASPIRIN LYSINE
     Indication: ATRIAL FIBRILLATION
     Route: 048
     Dates: end: 20130305
  3. SINTROM [Suspect]
     Active Substance: ACENOCOUMAROL
     Indication: ATRIAL FIBRILLATION
     Route: 048
     Dates: end: 20130305
  4. LOVENOX [Suspect]
     Active Substance: ENOXAPARIN SODIUM
     Dosage: TAKEN FROM 19-APR--2013
     Route: 058
     Dates: end: 20130808

REACTIONS (3)
  - Haemorrhage intracranial [Fatal]
  - Hemiplegia [Recovered/Resolved with Sequelae]
  - Frontotemporal dementia [Recovered/Resolved with Sequelae]

NARRATIVE: CASE EVENT DATE: 20130305
